FAERS Safety Report 8051328-8 (Version None)
Quarter: 2012Q1

REPORT INFORMATION
  Report Type: 
  Country: None (occurrence: None)
  Receive Date: 20120117
  Receipt Date: 20120110
  Transmission Date: 20120608
  Serious: Yes (Death)
  Sender: FDA-Public Use
  Company Number: AU-ROCHE-1030815

PATIENT

DRUGS (1)
  1. TENECTEPLASE [Suspect]
     Indication: ISCHAEMIC STROKE
     Route: 040

REACTIONS (1)
  - PNEUMONIA ASPIRATION [None]
